FAERS Safety Report 16031155 (Version 1)
Quarter: 2019Q1

REPORT INFORMATION
  Report Type: Spontaneous
  Country: NO (occurrence: NO)
  Receive Date: 20190304
  Receipt Date: 20190304
  Transmission Date: 20190418
  Serious: Yes (Death)
  Sender: FDA-Public Use
  Company Number: NO-IMPAX LABORATORIES, LLC-2019-IPXL-00603

PATIENT
  Sex: Female

DRUGS (1)
  1. METFORMIN HYDROCHLORIDE ER [Suspect]
     Active Substance: METFORMIN HYDROCHLORIDE
     Indication: POLYCYSTIC OVARIES
     Dosage: 2000 MILLIGRAM, QD
     Route: 065

REACTIONS (3)
  - Exposure during pregnancy [Unknown]
  - Adverse event [Fatal]
  - Product use in unapproved indication [Unknown]
